FAERS Safety Report 25107283 (Version 1)
Quarter: 2025Q1

REPORT INFORMATION
  Report Type: Spontaneous
  Country: FR (occurrence: FR)
  Receive Date: 20250321
  Receipt Date: 20250321
  Transmission Date: 20250409
  Serious: Yes (Death, Life-Threatening, Hospitalization)
  Sender: TEVA
  Company Number: None

PATIENT
  Age: 28 Year
  Sex: Female

DRUGS (6)
  1. DIAZEPAM [Suspect]
     Active Substance: DIAZEPAM
     Indication: Product used for unknown indication
     Route: 065
     Dates: start: 20250217
  2. PREGABALIN [Suspect]
     Active Substance: PREGABALIN
     Indication: Product used for unknown indication
     Route: 065
     Dates: start: 20250217
  3. TRAMADOL [Suspect]
     Active Substance: TRAMADOL
     Indication: Product used for unknown indication
     Route: 065
     Dates: start: 20250217
  4. NEFOPAM [Suspect]
     Active Substance: NEFOPAM
     Indication: Product used for unknown indication
     Route: 065
     Dates: start: 20250217
  5. DULOXETINE [Suspect]
     Active Substance: DULOXETINE
     Indication: Product used for unknown indication
     Route: 065
     Dates: start: 20250217
  6. FLUOXETINE [Suspect]
     Active Substance: FLUOXETINE HYDROCHLORIDE
     Indication: Product used for unknown indication
     Route: 065
     Dates: start: 20250217

REACTIONS (1)
  - Toxicity to various agents [Fatal]

NARRATIVE: CASE EVENT DATE: 20250217
